FAERS Safety Report 6924097-X (Version None)
Quarter: 2010Q3

REPORT INFORMATION
  Report Type: 
  Country: None (occurrence: None)
  Receive Date: 20100813
  Receipt Date: 20100809
  Transmission Date: 20110219
  Serious: Yes (Other)
  Sender: FDA-Public Use
  Company Number: CO-ROCHE-719873

PATIENT
  Sex: Female

DRUGS (6)
  1. ACTEMRA [Suspect]
     Indication: SYSTEMIC LUPUS ERYTHEMATOSUS
     Dosage: FORM: INFUSION, FREQUENCY: Q28 DAYS.
     Route: 042
     Dates: start: 20091003
  2. LOSARTAN POTASSIUM [Concomitant]
     Dosage: FREQUENCY: QD.
     Route: 048
  3. OMEPRAZOLE [Concomitant]
     Dosage: FREQUENCY: QD.
     Route: 048
  4. PREDNISOLONE [Concomitant]
     Indication: SYSTEMIC LUPUS ERYTHEMATOSUS
     Dosage: FREQUENCY: QD.
     Route: 048
  5. LOVASTATIN [Concomitant]
     Dosage: FREQUENCY: QD.
     Route: 048
  6. TRAMADOL HYDROCHLORIDE [Concomitant]
     Indication: PAIN
     Dosage: FREQUENCY: TID
     Route: 048

REACTIONS (2)
  - JAUNDICE [None]
  - NAUSEA [None]
